FAERS Safety Report 6677349-5 (Version None)
Quarter: 2010Q2

REPORT INFORMATION
  Report Type: 
  Country: None (occurrence: None)
  Receive Date: 20100409
  Receipt Date: 20100409
  Transmission Date: 20101027
  Serious: Yes (Other)
  Sender: FDA-Public Use
  Company Number: None

PATIENT
  Age: 62 Year
  Sex: Male
  Weight: 79.3795 kg

DRUGS (3)
  1. CIPRO [Suspect]
     Indication: PROSTATITIS
     Dosage: 500MG BID ORAL
     Dates: start: 20100315, end: 20100317
  2. FINASTERIDE [Concomitant]
  3. FLOMAX [Concomitant]

REACTIONS (4)
  - ARTHRALGIA [None]
  - DYSURIA [None]
  - MUSCULOSKELETAL PAIN [None]
  - RENAL PAIN [None]
